FAERS Safety Report 18484387 (Version 2)
Quarter: 2020Q4

REPORT INFORMATION
  Report Type: Report from Study
  Country: CA (occurrence: CA)
  Receive Date: 20201110
  Receipt Date: 20201216
  Transmission Date: 20210114
  Serious: Yes (Other)
  Sender: FDA-Public Use
  Company Number: CA-JNJFOC-20201111028

PATIENT
  Age: 15 Year
  Sex: Female
  Weight: 42 kg

DRUGS (2)
  1. REMICADE [Suspect]
     Active Substance: INFLIXIMAB
     Indication: CROHN^S DISEASE
     Dosage: DOSE WAS ALSO REPORTED AS 500 MG
     Route: 042
     Dates: start: 20190501
  2. REMICADE [Suspect]
     Active Substance: INFLIXIMAB
     Dosage: ON 09-DEC-2020, THE PATIENT RECEIVED 15TH 500 MG INFLIXIMAB INFUSION
     Route: 042

REACTIONS (2)
  - Vaginal haemorrhage [Unknown]
  - Crohn^s disease [Not Recovered/Not Resolved]

NARRATIVE: CASE EVENT DATE: 202010
